FAERS Safety Report 16229746 (Version 4)
Quarter: 2021Q2

REPORT INFORMATION
  Report Type: Spontaneous
  Country: US (occurrence: US)
  Receive Date: 20190423
  Receipt Date: 20210408
  Transmission Date: 20210716
  Serious: Yes (Other)
  Sender: FDA-Public Use
  Company Number: US-GILEAD-2019-0402598

PATIENT
  Sex: Female

DRUGS (1)
  1. TRUVADA [Suspect]
     Active Substance: EMTRICITABINE\TENOFOVIR DISOPROXIL FUMARATE
     Indication: HIV INFECTION
     Dosage: UNK
     Route: 048
     Dates: start: 2011, end: 201711

REACTIONS (6)
  - Bone density decreased [Not Recovered/Not Resolved]
  - Pain [Unknown]
  - Osteonecrosis [Unknown]
  - Emotional distress [Unknown]
  - Bone loss [Unknown]
  - Economic problem [Unknown]
